FAERS Safety Report 18530686 (Version 1)
Quarter: 2020Q4

REPORT INFORMATION
  Report Type: Spontaneous
  Country: FR (occurrence: FR)
  Receive Date: 20201121
  Receipt Date: 20201121
  Transmission Date: 20210114
  Serious: Yes (Other)
  Sender: FDA-Public Use
  Company Number: NVSC2020FR304514

PATIENT
  Age: 39 Year
  Sex: Female

DRUGS (5)
  1. VALIUM [Suspect]
     Active Substance: DIAZEPAM
     Indication: ANXIETY
     Dosage: 120 [DRP] (DROP (1/12 MILLILITRE)), QD
     Route: 048
     Dates: start: 2013, end: 20200911
  2. ZUCLOPENTHIXOL [Suspect]
     Active Substance: ZUCLOPENTHIXOL
     Indication: SCHIZOPHRENIA
     Dosage: 600 MG, 14D
     Route: 030
     Dates: start: 2015
  3. LOXAPINE. [Suspect]
     Active Substance: LOXAPINE
     Indication: PSYCHOTIC DISORDER
     Dosage: 200 [DRP] (DROP (1/12 MILLILITRE)), QD
     Route: 048
     Dates: start: 2014, end: 20200622
  4. OLANZAPINE. [Suspect]
     Active Substance: OLANZAPINE
     Indication: SCHIZOPHRENIA
     Dosage: 30 MG,QD
     Route: 048
     Dates: start: 2017
  5. ALIMEMAZINE [Suspect]
     Active Substance: TRIMEPRAZINE
     Indication: INSOMNIA
     Dosage: 20 [DRP] (DROP (1/12 MILLILITRE)),QD
     Route: 048
     Dates: start: 201911

REACTIONS (3)
  - Constipation [Not Recovered/Not Resolved]
  - Weight increased [Recovered/Resolved]
  - Tachycardia [Recovered/Resolved]

NARRATIVE: CASE EVENT DATE: 202006
